FAERS Safety Report 19924282 (Version 1)
Quarter: 2021Q4

REPORT INFORMATION
  Report Type: Spontaneous
  Country: US (occurrence: US)
  Receive Date: 20211006
  Receipt Date: 20211006
  Transmission Date: 20220304
  Serious: No
  Sender: FDA-Public Use
  Company Number: US-TEVA-2021-US-1960746

PATIENT
  Sex: Female

DRUGS (5)
  1. LIDOCAINE [Suspect]
     Active Substance: LIDOCAINE
     Indication: Sciatica
     Dosage: 5 PERCENT TO APPLY ONCE EVERY 12 HOURS
     Route: 062
     Dates: start: 202109
  2. SULINDAC [Suspect]
     Active Substance: SULINDAC
     Indication: Rheumatoid arthritis
     Dates: start: 202109
  3. MILK OF MAGNESIA [Concomitant]
     Active Substance: MAGNESIUM HYDROXIDE
     Indication: Constipation
     Dosage: AT NIGHT
  4. DEXILANT [Concomitant]
     Active Substance: DEXLANSOPRAZOLE
     Indication: Abdominal discomfort
  5. CORTISONE [Concomitant]
     Active Substance: CORTISONE
     Indication: Rash

REACTIONS (2)
  - Feeling hot [Not Recovered/Not Resolved]
  - Product use issue [Unknown]

NARRATIVE: CASE EVENT DATE: 20210901
